FAERS Safety Report 9286279 (Version 1)
Quarter: 2013Q2

REPORT INFORMATION
  Report Type: Spontaneous
  Country: US (occurrence: None)
  Receive Date: 20130510
  Receipt Date: 20130510
  Transmission Date: 20140414
  Serious: No
  Sender: FDA-Public Use
  Company Number: None

PATIENT
  Age: 63 Year
  Sex: Female
  Weight: 61.24 kg

DRUGS (2)
  1. SUBOXONE [Suspect]
     Indication: PAIN
     Dosage: 8/2, TID, SL
     Route: 060
  2. SUBOXONE [Suspect]
     Indication: DRUG DEPENDENCE
     Dosage: 8/2, TID, SL
     Route: 060

REACTIONS (3)
  - Dermatitis contact [None]
  - Joint swelling [None]
  - Tongue disorder [None]
